FAERS Safety Report 9587700 (Version 1)
Quarter: 2013Q4

REPORT INFORMATION
  Report Type: Spontaneous
  Country: US (occurrence: US)
  Receive Date: 20131003
  Receipt Date: 20131003
  Transmission Date: 20140711
  Serious: No
  Sender: FDA-Public Use
  Company Number: US-COVIDIEN/TYCO HEALTHCARE/MALLINCKRODT-T201203741

PATIENT
  Age: 55 Year
  Sex: Male

DRUGS (9)
  1. EXALGO EXTENDED RELEASE [Suspect]
     Indication: PAIN
     Dosage: 48 MG (4 TABLETS) IN 2 HOURS
     Dates: start: 20120903
  2. EXALGO EXTENDED RELEASE [Suspect]
     Dosage: 24 MG BID
     Dates: start: 2012
  3. CYCLOBENZAPRINE [Concomitant]
     Dosage: 10 MG TOTAL IN 2 HOURS
  4. OXYCODONE [Concomitant]
     Dosage: 30 MG TID
  5. LEVOFLOXACIN [Concomitant]
  6. METRONIDAZOLE [Concomitant]
  7. CALCIUM ANTAGONISTS [Concomitant]
  8. WARFARIN [Concomitant]
  9. FONDAPARINUX [Concomitant]
     Dosage: Q DAY

REACTIONS (1)
  - Extra dose administered [Recovered/Resolved]
